FAERS Safety Report 16336860 (Version 1)
Quarter: 2019Q2

REPORT INFORMATION
  Report Type: Spontaneous
  Country: US (occurrence: US)
  Receive Date: 20190520
  Receipt Date: 20190520
  Transmission Date: 20190711
  Serious: Yes (Other)
  Sender: FDA-Public Use
  Company Number: None

PATIENT
  Age: 74 Year
  Sex: Female
  Weight: 81 kg

DRUGS (36)
  1. AMLODIPINE [Concomitant]
     Active Substance: AMLODIPINE BESYLATE
  2. COENZYME Q10 [Concomitant]
     Active Substance: UBIDECARENONE
  3. REPATHA [Suspect]
     Active Substance: EVOLOCUMAB
     Indication: BLOOD CHOLESTEROL INCREASED
     Dosage: ?          QUANTITY:1 INJECTION(S);OTHER FREQUENCY:EVERY OTHER WEEK;?
     Route: 030
     Dates: start: 20190503, end: 20190517
  4. METOPROLOL ER [Concomitant]
     Active Substance: METOPROLOL SUCCINATE
  5. STARTED CHEMO 2 MONTHS AGO [Concomitant]
  6. VITAMIN D [Concomitant]
     Active Substance: VITAMIN D NOS
  7. OMEGA 3 [Concomitant]
     Active Substance: OMEGA-3 FATTY ACIDS
  8. ZETIA [Concomitant]
     Active Substance: EZETIMIBE
  9. VITAMIN C [Concomitant]
     Active Substance: ASCORBIC ACID
  10. VITAMIN E [Concomitant]
     Active Substance: .ALPHA.-TOCOPHEROL
  11. VITAMIN A [Concomitant]
     Active Substance: VITAMIN A
  12. STOOL SOFTENER (DOCUSATE) [Concomitant]
     Active Substance: DOCUSATE
  13. PROTONIX [Concomitant]
     Active Substance: PANTOPRAZOLE SODIUM
  14. RANEXA [Concomitant]
     Active Substance: RANOLAZINE
  15. NITROGLYCERIN. [Concomitant]
     Active Substance: NITROGLYCERIN
  16. ACYCLOVIR. [Concomitant]
     Active Substance: ACYCLOVIR
  17. THIMUPLEX [Concomitant]
  18. CLARITIN [Concomitant]
     Active Substance: LORATADINE
  19. BIOTIN [Concomitant]
     Active Substance: BIOTIN
  20. CHROMIUM PICOLINATE [Concomitant]
     Active Substance: CHROMIUM PICOLINATE
  21. GINGKO BILOBA [Concomitant]
     Active Substance: GINKGO
  22. MULTIVITAMIN [Concomitant]
     Active Substance: VITAMINS
  23. POTASSIUM [Concomitant]
     Active Substance: POTASSIUM
  24. LUMITAN EYE DROPS [Concomitant]
  25. LIALDA [Concomitant]
     Active Substance: MESALAMINE
  26. ASPIRIN. [Concomitant]
     Active Substance: ASPIRIN
  27. BELCADE [Concomitant]
  28. LANTUS [Concomitant]
     Active Substance: INSULIN GLARGINE
  29. HUMALOG [Concomitant]
     Active Substance: INSULIN LISPRO
  30. BENECAR HCT [Concomitant]
  31. HYDROCODONE [Concomitant]
     Active Substance: HYDROCODONE
  32. ISOSORBIDE. [Concomitant]
     Active Substance: ISOSORBIDE
  33. PHILIPS COLON HEALTH [Concomitant]
  34. ALBUTEROL. [Concomitant]
     Active Substance: ALBUTEROL
  35. MEG [Concomitant]
  36. B6 [Concomitant]
     Active Substance: PYRIDOXINE HYDROCHLORIDE

REACTIONS (1)
  - Muscle spasms [None]

NARRATIVE: CASE EVENT DATE: 20190517
